FAERS Safety Report 7652758-6 (Version None)
Quarter: 2011Q3

REPORT INFORMATION
  Report Type: 
  Country: None (occurrence: None)
  Receive Date: 20110803
  Receipt Date: 20110720
  Transmission Date: 20111222
  Serious: Yes (Hospitalization, Other)
  Sender: FDA-Public Use
  Company Number: US-RANBAXY-2011US-46318

PATIENT
  Age: 76 Year
  Sex: Female

DRUGS (2)
  1. GABAPENTIN [Suspect]
     Dosage: 600 MG, TID
     Route: 065
  2. GABAPENTIN [Suspect]
     Indication: DIABETIC NEUROPATHY
     Dosage: 1200 MG, TID
     Route: 065

REACTIONS (3)
  - DRUG WITHDRAWAL SYNDROME [None]
  - LETHARGY [None]
  - AKATHISIA [None]
